FAERS Safety Report 5607412-9 (Version None)
Quarter: 2008Q1

REPORT INFORMATION
  Report Type: 
  Country: None (occurrence: None)
  Receive Date: 20080125
  Receipt Date: 20080116
  Transmission Date: 20080703
  Serious: Yes (Hospitalization)
  Sender: FDA-Public Use
  Company Number: 2008BI000014

PATIENT
  Age: 45 Year
  Sex: Female

DRUGS (2)
  1. TYSABRI [Suspect]
     Indication: MULTIPLE SCLEROSIS
     Dosage: 300 MG;QM;IV
     Route: 042
     Dates: start: 20071206
  2. SUPPOSITORY (NOS) [Concomitant]

REACTIONS (6)
  - CONFUSIONAL STATE [None]
  - DRUG HYPERSENSITIVITY [None]
  - MUSCLE TWITCHING [None]
  - MYOCLONUS [None]
  - SYNCOPE VASOVAGAL [None]
  - UNRESPONSIVE TO STIMULI [None]
